FAERS Safety Report 7235596-8 (Version None)
Quarter: 2011Q1

REPORT INFORMATION
  Report Type: 
  Country: None (occurrence: None)
  Receive Date: 20110120
  Receipt Date: 20110117
  Transmission Date: 20110831
  Serious: Yes (Hospitalization)
  Sender: FDA-Public Use
  Company Number: PHHO2010GB19321

PATIENT
  Sex: Male
  Weight: 75.2 kg

DRUGS (11)
  1. DOCETAXEL [Suspect]
     Indication: HEAD AND NECK CANCER
     Dosage: 75 MG/M2, EVERY 3 WEEKS
     Dates: start: 20101207
  2. PARACETAMOL [Concomitant]
     Indication: PAIN
  3. AFINITOR [Suspect]
     Indication: HEAD AND NECK CANCER
     Dosage: 10 MG, QW
     Route: 048
     Dates: start: 20101207
  4. CIPROFLOXACIN [Concomitant]
     Indication: PROPHYLAXIS
     Dosage: UNK
  5. SIMVASTATIN [Concomitant]
     Dosage: UNK
     Dates: start: 20101109, end: 20101123
  6. METOCLOPRAMIDE [Concomitant]
     Dosage: UNK
     Dates: start: 20101207, end: 20101207
  7. BENDROFLUMETHIAZIDE [Concomitant]
  8. ASPIRIN [Concomitant]
  9. CODEINE SULFATE [Concomitant]
     Dosage: UNK
  10. PRAVASTATIN SODIUM [Concomitant]
     Dosage: UNK
     Dates: start: 20101124
  11. DEXAMETHASONE [Concomitant]
     Dosage: UNK
     Dates: start: 20101206, end: 20101208

REACTIONS (3)
  - OROPHARYNGEAL PAIN [None]
  - NEUTROPENIC SEPSIS [None]
  - NEUTROPENIA [None]
